FAERS Safety Report 23658576 (Version 23)
Quarter: 2025Q4

REPORT INFORMATION
  Report Type: Report from Study
  Country: CO (occurrence: CO)
  Receive Date: 20240321
  Receipt Date: 20251201
  Transmission Date: 20260117
  Serious: Yes (Hospitalization, Other)
  Sender: TAKEDA
  Company Number: CO-TAKEDA-2024TUS025496

PATIENT
  Age: 44 Year
  Sex: Female
  Weight: 59 kg

DRUGS (4)
  1. TEDUGLUTIDE [Suspect]
     Active Substance: TEDUGLUTIDE
     Indication: Short-bowel syndrome
     Dosage: 3 MILLIGRAM, QD
     Dates: start: 20240314
  2. TEDUGLUTIDE [Suspect]
     Active Substance: TEDUGLUTIDE
     Dosage: 3 MILLIGRAM, MONTHLY
  3. TEDUGLUTIDE [Suspect]
     Active Substance: TEDUGLUTIDE
     Dosage: UNK UNK, QD
  4. TEDUGLUTIDE [Suspect]
     Active Substance: TEDUGLUTIDE
     Dosage: 3 MILLIGRAM, QD

REACTIONS (29)
  - Asthenia [Unknown]
  - Inflammation [Unknown]
  - Pain [Unknown]
  - Suicidal ideation [Unknown]
  - Sepsis [Unknown]
  - Discouragement [Unknown]
  - Pyrexia [Not Recovered/Not Resolved]
  - Device related infection [Unknown]
  - Rash [Unknown]
  - Dermatitis allergic [Not Recovered/Not Resolved]
  - Stoma site haemorrhage [Unknown]
  - Stoma site discharge [Unknown]
  - Weight decreased [Unknown]
  - Infrequent bowel movements [Recovered/Resolved]
  - Flank pain [Recovered/Resolved]
  - Treatment noncompliance [Unknown]
  - Abdominal distension [Unknown]
  - Nausea [Unknown]
  - Self esteem decreased [Unknown]
  - General physical health deterioration [Unknown]
  - Social fear [Unknown]
  - Negative thoughts [Unknown]
  - Stoma complication [Unknown]
  - Weight increased [Unknown]
  - Product prescribing error [Unknown]
  - Incorrect dose administered [Unknown]
  - Depression [Not Recovered/Not Resolved]
  - Erythema [Unknown]
  - Pruritus [Unknown]

NARRATIVE: CASE EVENT DATE: 20240314
